FAERS Safety Report 6807916-7 (Version None)
Quarter: 2010Q2

REPORT INFORMATION
  Report Type: 
  Country: None (occurrence: None)
  Receive Date: 20100629
  Receipt Date: 20090413
  Transmission Date: 20101027
  Serious: No
  Sender: FDA-Public Use
  Company Number: US-PFIZER INC-2008156926

PATIENT
  Sex: Male

DRUGS (18)
  1. VIAGRA [Suspect]
     Dosage: UNK
  2. ALAVERT [Concomitant]
     Dosage: UNK
  3. MUCINEX [Concomitant]
     Dosage: UNK
  4. SUDAFED 12 HOUR [Concomitant]
     Dosage: UNK
  5. ACIPHEX [Concomitant]
     Dosage: UNK
  6. ENALAPRIL [Concomitant]
     Dosage: UNK
  7. ACETYLSALICYLIC ACID [Concomitant]
     Dosage: UNK
  8. MELOXICAM [Concomitant]
     Dosage: UNK
  9. VYTORIN [Concomitant]
     Dosage: UNK
  10. SINGULAIR [Concomitant]
     Dosage: UNK
  11. NIASPAN [Concomitant]
     Dosage: UNK
  12. ASTELIN [Concomitant]
     Dosage: UNK
  13. ASMANEX TWISTHALER [Concomitant]
     Dosage: UNK
  14. LIDODERM [Concomitant]
     Dosage: UNK
  15. FLUOCINONIDE [Concomitant]
     Dosage: UNK
  16. QVAR 40 [Concomitant]
     Dosage: UNK
  17. XOPENEX [Concomitant]
     Dosage: UNK
  18. PROMETHAZINE VC PLAIN [Concomitant]
     Dosage: UNK

REACTIONS (2)
  - COUGH [None]
  - NASAL CONGESTION [None]
